FAERS Safety Report 7509214-5 (Version None)
Quarter: 2011Q2

REPORT INFORMATION
  Report Type: 
  Country: None (occurrence: None)
  Receive Date: 20110519
  Receipt Date: 20110503
  Transmission Date: 20111010
  Serious: Yes (Disabling, Other)
  Sender: FDA-Public Use
  Company Number: ADE2009-0559

PATIENT
  Age: 78 Year
  Sex: Male

DRUGS (4)
  1. ZOLADEX [Concomitant]
  2. SIMVASTATIN [Suspect]
     Indication: BRONCHOPULMONARY ASPERGILLOSIS
     Dosage: 40 MG - DAILY - ORAL
     Route: 048
     Dates: start: 20051101
  3. WARFARIN SODIUM [Concomitant]
  4. ITRACONAZOLE [Suspect]
     Dates: start: 20051201

REACTIONS (10)
  - ABASIA [None]
  - BLOOD CREATINE PHOSPHOKINASE INCREASED [None]
  - POLYNEUROPATHY [None]
  - MITOCHONDRIAL MYOPATHY ACQUIRED [None]
  - BLOOD CREATINE PHOSPHOKINASE ABNORMAL [None]
  - BRONCHOPULMONARY ASPERGILLOSIS [None]
  - NERVE CONDUCTION STUDIES ABNORMAL [None]
  - MYALGIA [None]
  - MUSCLE CONTRACTIONS INVOLUNTARY [None]
  - UBIQUINONE DECREASED [None]
